FAERS Safety Report 17949467 (Version 9)
Quarter: 2024Q3

REPORT INFORMATION
  Report Type: Spontaneous
  Country: JP (occurrence: JP)
  Receive Date: 20200626
  Receipt Date: 20240830
  Transmission Date: 20241017
  Serious: Yes (Death, Hospitalization, Other)
  Sender: ASTELLAS
  Company Number: JP-ASTELLAS-2020JP008899

PATIENT
  Age: 25 Year
  Sex: Female

DRUGS (25)
  1. PROGRAF [Suspect]
     Active Substance: TACROLIMUS
     Indication: Stem cell transplant
     Route: 065
  2. PROGRAF [Suspect]
     Active Substance: TACROLIMUS
     Indication: Stem cell transplant
     Route: 048
  3. MICAFUNGIN SODIUM [Suspect]
     Active Substance: MICAFUNGIN SODIUM
     Indication: Product used for unknown indication
     Dosage: 50MG/DAY
     Route: 065
  4. BLINCYTO [Suspect]
     Active Substance: BLINATUMOMAB
     Indication: Acute lymphocytic leukaemia
     Route: 042
     Dates: start: 20190614, end: 201907
  5. BLINCYTO [Suspect]
     Active Substance: BLINATUMOMAB
     Route: 042
     Dates: start: 20190728, end: 20190814
  6. ASCORBIC ACID [Suspect]
     Active Substance: ASCORBIC ACID
     Indication: Product used for unknown indication
     Route: 042
  7. ACETAMINOPHEN [Suspect]
     Active Substance: ACETAMINOPHEN
     Indication: Product used for unknown indication
     Route: 065
  8. ACETAMINOPHEN [Suspect]
     Active Substance: ACETAMINOPHEN
     Indication: Pyrexia
     Route: 065
     Dates: start: 2020, end: 2020
  9. VALGANCICLOVIR HYDROCHLORIDE [Suspect]
     Active Substance: VALGANCICLOVIR HYDROCHLORIDE
     Indication: Product used for unknown indication
     Route: 048
     Dates: start: 2019
  10. VALGANCICLOVIR HYDROCHLORIDE [Suspect]
     Active Substance: VALGANCICLOVIR HYDROCHLORIDE
     Route: 048
     Dates: start: 2020, end: 2020
  11. CYCLOPHOSPHAMIDE [Suspect]
     Active Substance: CYCLOPHOSPHAMIDE
     Indication: Product used for unknown indication
     Route: 065
  12. BUSULFEX [Suspect]
     Active Substance: BUSULFAN
     Indication: Product used for unknown indication
     Route: 065
  13. TRUVADA [Suspect]
     Active Substance: EMTRICITABINE\TENOFOVIR DISOPROXIL FUMARATE
     Indication: Product used for unknown indication
     Route: 065
  14. PREDONINE [Suspect]
     Active Substance: PREDNISOLONE
     Indication: Product used for unknown indication
     Route: 048
  15. PREDONINE [Suspect]
     Active Substance: PREDNISOLONE
     Route: 048
  16. FLUCONAZOLE [Suspect]
     Active Substance: FLUCONAZOLE
     Indication: Product used for unknown indication
     Route: 065
  17. VFEND [Suspect]
     Active Substance: VORICONAZOLE
     Indication: Product used for unknown indication
     Route: 048
  18. NEORAL [Concomitant]
     Active Substance: CYCLOSPORINE
     Indication: Product used for unknown indication
     Route: 048
  19. AMBISOME [Concomitant]
     Active Substance: AMPHOTERICIN B
     Indication: Mucormycosis
     Route: 065
  20. Denosine [Concomitant]
     Indication: Cytomegalovirus infection
     Route: 065
  21. TEICOPLANIN [Concomitant]
     Active Substance: TEICOPLANIN
     Indication: Product used for unknown indication
     Route: 065
  22. PREVYMIS [Concomitant]
     Active Substance: LETERMOVIR
     Indication: Product used for unknown indication
     Route: 065
  23. CEFEPIME [Concomitant]
     Active Substance: CEFEPIME HYDROCHLORIDE
     Indication: Product used for unknown indication
     Route: 065
  24. ZOVIRAX [Concomitant]
     Active Substance: ACYCLOVIR
     Indication: Herpes zoster
     Route: 065
  25. DEXAMETHASONE [Concomitant]
     Active Substance: DEXAMETHASONE
     Indication: Product used for unknown indication
     Dosage: 1 DF, UNKNOWN FREQUENCY
     Route: 065

REACTIONS (22)
  - Acute lymphocytic leukaemia [Fatal]
  - Cytomegalovirus infection [Fatal]
  - Renal cancer [Fatal]
  - Glaucoma [Unknown]
  - Gastrointestinal erosion [Unknown]
  - Haematemesis [Unknown]
  - Melaena [Unknown]
  - Pyrexia [Unknown]
  - Pneumocystis jirovecii pneumonia [Unknown]
  - Sepsis [Unknown]
  - Staphylococcal infection [Unknown]
  - Lymphocyte count decreased [Unknown]
  - Platelet count decreased [Unknown]
  - Pharyngeal erosion [Unknown]
  - Eating disorder [Unknown]
  - Constipation [Unknown]
  - Gait disturbance [Unknown]
  - Neutrophil count decreased [Unknown]
  - Red blood cell count decreased [Unknown]
  - Pain [Unknown]
  - Alopecia [Unknown]
  - Mucormycosis [Fatal]

NARRATIVE: CASE EVENT DATE: 20200101
